FAERS Safety Report 5305762-7 (Version None)
Quarter: 2007Q2

REPORT INFORMATION
  Report Type: 
  Country: None (occurrence: None)
  Receive Date: 20070416
  Receipt Date: 20070404
  Transmission Date: 20071010
  Serious: Yes (Other)
  Sender: FDA-Public Use
  Company Number: 2007SP006244

PATIENT
  Age: 49 Year
  Sex: Male

DRUGS (7)
  1. PEG-INTRON [Suspect]
     Indication: HEPATITIS C
     Dosage: SC
     Route: 058
     Dates: start: 20050801, end: 20060801
  2. REBETOL [Suspect]
     Indication: HEPATITIS C
     Dosage: PO
     Route: 048
     Dates: start: 20050801, end: 20060801
  3. ZIDOVUDINE (PREV.) [Concomitant]
  4. LAMIVUDINE (CON.) [Concomitant]
  5. INDINAVIR (PREV.) [Concomitant]
  6. LOPINAVIR/RITONAVIR (CON.) [Concomitant]
  7. TENOFOVIR (CON.) [Concomitant]

REACTIONS (5)
  - CD4 LYMPHOCYTES DECREASED [None]
  - CD8 LYMPHOCYTES DECREASED [None]
  - HAEMOGLOBIN DECREASED [None]
  - RED BLOOD CELL COUNT DECREASED [None]
  - WHITE BLOOD CELL COUNT DECREASED [None]
